FAERS Safety Report 6641701-4 (Version None)
Quarter: 2010Q1

REPORT INFORMATION
  Report Type: 
  Country: None (occurrence: None)
  Receive Date: 20100319
  Receipt Date: 20100312
  Transmission Date: 20100710
  Serious: Yes (Hospitalization)
  Sender: FDA-Public Use
  Company Number: FR-BIOGENIDEC-2009BI039616

PATIENT
  Age: 59 Year
  Sex: Female
  Weight: 53 kg

DRUGS (3)
  1. TYSABRI [Suspect]
     Indication: MULTIPLE SCLEROSIS
     Route: 042
     Dates: start: 20071205, end: 20091102
  2. BACLOFEN [Concomitant]
     Indication: MUSCLE SPASTICITY
     Dates: start: 20091114
  3. ACEBUTOLOL [Concomitant]
     Indication: HYPERTENSION
     Dates: start: 20091112

REACTIONS (3)
  - CEREBRAL HAEMATOMA [None]
  - HYPERTENSION [None]
  - PNEUMONIA PNEUMOCOCCAL [None]
